FAERS Safety Report 9423413 (Version 3)
Quarter: 2013Q4

REPORT INFORMATION
  Report Type: Spontaneous
  Country: US (occurrence: US)
  Receive Date: 20130726
  Receipt Date: 20131021
  Transmission Date: 20140711
  Serious: Yes (Hospitalization)
  Sender: FDA-Public Use
  Company Number: US-UCBSA-092239

PATIENT
  Age: 61 Year
  Sex: Female

DRUGS (4)
  1. CIMZIA [Suspect]
     Indication: CROHN^S DISEASE
     Route: 058
     Dates: start: 20110408, end: 20110720
  2. CIMZIA [Suspect]
     Indication: CROHN^S DISEASE
     Route: 058
     Dates: start: 20111020
  3. VIT D [Concomitant]
  4. MAG-OX [Concomitant]

REACTIONS (2)
  - Sepsis [Recovered/Resolved]
  - Inappropriate schedule of drug administration [Unknown]
